FAERS Safety Report 18450520 (Version 2)
Quarter: 2020Q4

REPORT INFORMATION
  Report Type: Spontaneous
  Country: AT (occurrence: AT)
  Receive Date: 20201102
  Receipt Date: 20201118
  Transmission Date: 20210114
  Serious: Yes (Hospitalization, Other)
  Sender: FDA-Public Use
  Company Number: AT-UNITED THERAPEUTICS-UNT-2020-016452

PATIENT

DRUGS (5)
  1. REMODULIN [Suspect]
     Active Substance: TREPROSTINIL
     Dosage: 0.0124 ?G/KG, CONTINUING
     Route: 058
     Dates: start: 2010
  2. REMODULIN [Suspect]
     Active Substance: TREPROSTINIL
     Indication: PULMONARY ARTERIAL HYPERTENSION
     Dosage: IMPLANTABLE PUMP WITH VOLUME OF 40 ML AND A CONSTANT FLOW-RATE OF 1.3 ML/DAY, CONTINUING
     Route: 041
     Dates: start: 201009
  3. BOSENTAN. [Concomitant]
     Active Substance: BOSENTAN
     Indication: PULMONARY ARTERIAL HYPERTENSION
     Dosage: UNK
     Route: 048
  4. REMODULIN [Suspect]
     Active Substance: TREPROSTINIL
     Indication: PULMONARY ARTERIAL HYPERTENSION
     Dosage: UNK, CONTINUING
     Route: 058
     Dates: start: 2010
  5. REMODULIN [Suspect]
     Active Substance: TREPROSTINIL
     Dosage: 0.0186 ?G/KG, CONTINUING
     Route: 058
     Dates: start: 2010, end: 201009

REACTIONS (5)
  - Hypotension [Recovered/Resolved]
  - Infusion site pain [Unknown]
  - Product use issue [Unknown]
  - Overdose [Recovered/Resolved]
  - Infusion site infection [Unknown]

NARRATIVE: CASE EVENT DATE: 2010
